FAERS Safety Report 9543200 (Version 1)
Quarter: 2013Q3

REPORT INFORMATION
  Report Type: Spontaneous
  Country: US (occurrence: US)
  Receive Date: 20130923
  Receipt Date: 20130923
  Transmission Date: 20140515
  Serious: No
  Sender: FDA-Public Use
  Company Number: US-PURDUE-USA-2012-0094058

PATIENT
  Sex: Male
  Weight: 74.83 kg

DRUGS (4)
  1. DILAUDID TABLET [Suspect]
     Indication: INTERVERTEBRAL DISC PROTRUSION
     Dosage: UNK
     Route: 048
  2. DILAUDID TABLET [Suspect]
     Indication: JAW FRACTURE
  3. MS CONTIN TABLETS [Suspect]
     Indication: INTERVERTEBRAL DISC PROTRUSION
     Dosage: UNK
     Route: 048
     Dates: start: 2009, end: 201206
  4. MS CONTIN TABLETS [Suspect]
     Indication: JAW FRACTURE

REACTIONS (1)
  - Inadequate analgesia [Unknown]
